FAERS Safety Report 9463521 (Version 3)
Quarter: 2015Q4

REPORT INFORMATION
  Report Type: Report from Study
  Country: US (occurrence: US)
  Receive Date: 20130819
  Receipt Date: 20151023
  Transmission Date: 20160305
  Serious: Yes (Hospitalization)
  Sender: FDA-Public Use
  Company Number: US-ROCHE-1244283

PATIENT
  Sex: Male

DRUGS (1)
  1. LUCENTIS [Suspect]
     Active Substance: RANIBIZUMAB
     Indication: RETINAL OEDEMA
     Route: 050

REACTIONS (5)
  - Fall [Unknown]
  - Ocular hyperaemia [Unknown]
  - Hypoaesthesia [Unknown]
  - Joint dislocation [Unknown]
  - Lacrimation increased [Unknown]
